FAERS Safety Report 13513976 (Version 1)
Quarter: 2017Q2

REPORT INFORMATION
  Report Type: Not Available
  Country: US (occurrence: US)
  Receive Date: 20170504
  Receipt Date: 20170504
  Transmission Date: 20170830
  Serious: Yes (Other)
  Sender: FDA-Public Use
  Company Number: US-IHEALTH-2017-US-004088

PATIENT
  Age: 55 Year
  Sex: Female
  Weight: 54.43 kg

DRUGS (2)
  1. AZO URINARY PAIN RELIEF [Suspect]
     Active Substance: PHENAZOPYRIDINE HYDROCHLORIDE
     Route: 048
     Dates: start: 20170416, end: 20170417
  2. MULTIVITAMIN [Concomitant]
     Active Substance: VITAMINS

REACTIONS (6)
  - Kidney infection [Unknown]
  - Infection [Unknown]
  - Pyrexia [Unknown]
  - Abdominal pain [Unknown]
  - Nephrolithiasis [Unknown]
  - Helicobacter infection [None]

NARRATIVE: CASE EVENT DATE: 201704
